FAERS Safety Report 4873827-X (Version None)
Quarter: 2006Q1

REPORT INFORMATION
  Report Type: 
  Country: None (occurrence: None)
  Receive Date: 20060104
  Receipt Date: 20051221
  Transmission Date: 20060701
  Serious: Yes (Hospitalization)
  Sender: FDA-Public Use
  Company Number: 2005SP004514

PATIENT
  Age: 42 Year
  Sex: Female

DRUGS (3)
  1. LUNESTA [Suspect]
     Indication: INSOMNIA
     Dosage: 1 MG; 1X; ORAL
     Route: 048
     Dates: start: 20051207, end: 20051207
  2. FENTANYL [Concomitant]
  3. MULTIVITAMIN [Concomitant]

REACTIONS (2)
  - HALLUCINATION [None]
  - PSYCHOTIC DISORDER [None]
